FAERS Safety Report 14329661 (Version 1)
Quarter: 2017Q4

REPORT INFORMATION
  Report Type: Spontaneous
  Country: JP (occurrence: JP)
  Receive Date: 20171227
  Receipt Date: 20171227
  Transmission Date: 20180321
  Serious: Yes (Hospitalization)
  Sender: FDA-Public Use
  Company Number: JP-SA-2017SA244881

PATIENT
  Age: 80 Year
  Sex: Male

DRUGS (7)
  1. INSULIN LISPRO [Suspect]
     Active Substance: INSULIN LISPRO
     Indication: TYPE 2 DIABETES MELLITUS
     Route: 065
  2. INSULIN LISPRO [Suspect]
     Active Substance: INSULIN LISPRO
     Indication: TYPE 2 DIABETES MELLITUS
     Route: 065
  3. INSULIN LISPRO [Suspect]
     Active Substance: INSULIN LISPRO
     Indication: TYPE 2 DIABETES MELLITUS
     Dosage: AT DOSES LOWER THAN THE PREVIOUSLY ADMINISTERED DOSE (38 U)
     Route: 065
  4. MOMETASONE FUROATE. [Suspect]
     Active Substance: MOMETASONE FUROATE
     Indication: PSORIASIS
     Route: 061
  5. VOGLIBOSE [Concomitant]
     Active Substance: VOGLIBOSE
     Indication: TYPE 2 DIABETES MELLITUS
     Route: 065
  6. BETAMETHASONE/DEXCHLORPHENIRAMINE MALEATE [Concomitant]
     Indication: PSORIASIS
     Dosage: 0.5 MG BETAMETHASONE PER TABLET
     Route: 048
  7. VITAMIN D3 [Concomitant]
     Active Substance: CHOLECALCIFEROL
     Route: 061

REACTIONS (5)
  - Secondary adrenocortical insufficiency [Unknown]
  - Hypoglycaemia [Unknown]
  - Cortisol decreased [Unknown]
  - Diabetes mellitus inadequate control [Recovering/Resolving]
  - Blood corticotrophin decreased [Unknown]
